FAERS Safety Report 8488621-0 (Version None)
Quarter: 2012Q3

REPORT INFORMATION
  Report Type: 
  Country: None (occurrence: None)
  Receive Date: 20120705
  Receipt Date: 20120630
  Transmission Date: 20120928
  Serious: Yes (Death, Other)
  Sender: FDA-Public Use
  Company Number: PHHY2012MX057414

PATIENT
  Sex: Male

DRUGS (1)
  1. EXFORGE [Suspect]
     Indication: HYPERTENSION
     Dosage: 1 DF (VALS 160 MG, AMLO 10 MG), DAILY
     Dates: start: 20110501

REACTIONS (2)
  - DIALYSIS RELATED COMPLICATION [None]
  - RENAL DISORDER [None]
